FAERS Safety Report 12831779 (Version 1)
Quarter: 2016Q4

REPORT INFORMATION
  Report Type: Report from Study
  Country: IT (occurrence: IT)
  Receive Date: 20161010
  Receipt Date: 20161010
  Transmission Date: 20170207
  Serious: Yes (Other)
  Sender: FDA-Public Use
  Company Number: IT-BRISTOL-MYERS SQUIBB COMPANY-BMS-2016-063944

PATIENT
  Age: 62 Year
  Sex: Male

DRUGS (2)
  1. METHYLPREDNISOLONE                 /00049602/ [Concomitant]
     Active Substance: METHYLPREDNISOLONE
     Indication: PRODUCT USED FOR UNKNOWN INDICATION
     Dosage: 60 MG, QD
     Route: 065
  2. NIVOLUMAB [Suspect]
     Active Substance: NIVOLUMAB
     Indication: NON-SMALL CELL LUNG CANCER
     Dosage: 3 MG/KG, Q2WK (230 MG/CYCLE)
     Route: 065
     Dates: start: 20160219

REACTIONS (3)
  - Weight decreased [Unknown]
  - Autoimmune colitis [Recovering/Resolving]
  - Haemorrhoids [Unknown]

NARRATIVE: CASE EVENT DATE: 20160727
